FAERS Safety Report 13586879 (Version 1)
Quarter: 2017Q2

REPORT INFORMATION
  Report Type: Spontaneous
  Country: US (occurrence: US)
  Receive Date: 20170526
  Receipt Date: 20170526
  Transmission Date: 20170830
  Serious: No
  Sender: FDA-Public Use
  Company Number: US-ROCHE-688111

PATIENT
  Age: 51 Year
  Sex: Female
  Weight: 63.5 kg

DRUGS (16)
  1. SINGULAIR [Concomitant]
     Active Substance: MONTELUKAST SODIUM
     Route: 065
  2. MORPHINE SULFATE. [Concomitant]
     Active Substance: MORPHINE SULFATE
     Route: 065
  3. CORTISOL [Concomitant]
     Active Substance: HYDROCORTISONE
     Route: 065
  4. FROVA [Concomitant]
     Active Substance: FROVATRIPTAN SUCCINATE
     Route: 065
  5. TESTOSTERONE. [Concomitant]
     Active Substance: TESTOSTERONE
     Route: 065
  6. CORGARD [Concomitant]
     Active Substance: NADOLOL
     Route: 065
  7. DHEA [Concomitant]
     Active Substance: PRASTERONE
     Route: 065
  8. BI-EST [Concomitant]
     Route: 065
  9. PROGESTERONE. [Concomitant]
     Active Substance: PROGESTERONE
     Route: 065
  10. NORCO [Concomitant]
     Active Substance: ACETAMINOPHEN\HYDROCODONE BITARTRATE
     Route: 065
  11. UNKNOWN MEDICATION [Concomitant]
     Active Substance: UNSPECIFIED INGREDIENT
     Dosage: DRUG: MEDRINE
     Route: 065
  12. VALCYTE [Suspect]
     Active Substance: VALGANCICLOVIR HYDROCHLORIDE
     Indication: CYTOMEGALOVIRUS INFECTION
     Route: 048
     Dates: start: 200808, end: 20100215
  13. LUNESTA [Concomitant]
     Active Substance: ESZOPICLONE
     Route: 065
  14. ALLEGRA [Concomitant]
     Active Substance: FEXOFENADINE HYDROCHLORIDE
     Route: 065
  15. MUCINEX [Concomitant]
     Active Substance: GUAIFENESIN
     Route: 065
  16. AXERT [Concomitant]
     Active Substance: ALMOTRIPTAN MALATE
     Route: 065

REACTIONS (8)
  - Chest pain [Unknown]
  - Chills [Unknown]
  - Disorientation [Unknown]
  - Hypoaesthesia [Unknown]
  - Asthenia [Not Recovered/Not Resolved]
  - Hyperhidrosis [Unknown]
  - Peripheral coldness [Unknown]
  - Bedridden [Not Recovered/Not Resolved]

NARRATIVE: CASE EVENT DATE: 20100215
